FAERS Safety Report 9952417 (Version 1)
Quarter: 2014Q1

REPORT INFORMATION
  Report Type: Report from Study
  Country: US (occurrence: US)
  Receive Date: 20140304
  Receipt Date: 20140304
  Transmission Date: 20141002
  Serious: No
  Sender: FDA-Public Use
  Company Number: US-ABBVIE-13P-163-1080279-00

PATIENT
  Age: 53 Year
  Sex: Female

DRUGS (13)
  1. HUMIRA [Suspect]
     Indication: CROHN^S DISEASE
     Route: 058
     Dates: start: 20130131, end: 20130428
  2. IMURAN [Concomitant]
     Indication: CROHN^S DISEASE
  3. PRILOSEC [Concomitant]
     Indication: DYSPEPSIA
  4. OTC NASAL SPRAY [Concomitant]
     Indication: NASAL DRYNESS
  5. FISH OIL [Concomitant]
     Indication: SUPPLEMENTATION THERAPY
  6. VITAMIN B 12 [Concomitant]
     Indication: SUPPLEMENTATION THERAPY
  7. MULTIVITAMIN [Concomitant]
     Indication: SUPPLEMENTATION THERAPY
  8. VITAMIN D3 [Concomitant]
     Indication: SUPPLEMENTATION THERAPY
  9. CALCIUM WITH VITAMIN D [Concomitant]
     Indication: SUPPLEMENTATION THERAPY
  10. IRON [Concomitant]
     Indication: SUPPLEMENTATION THERAPY
  11. GINKGO BILOBA [Concomitant]
     Indication: PROPHYLAXIS
  12. NORVASC [Concomitant]
     Indication: HYPERTENSION
  13. KLOR-CON [Concomitant]
     Indication: BLOOD POTASSIUM DECREASED

REACTIONS (5)
  - Unevaluable event [Not Recovered/Not Resolved]
  - Myalgia [Not Recovered/Not Resolved]
  - Paraesthesia [Not Recovered/Not Resolved]
  - Joint swelling [Not Recovered/Not Resolved]
  - Gingival swelling [Not Recovered/Not Resolved]
